FAERS Safety Report 5677132-3 (Version None)
Quarter: 2008Q1

REPORT INFORMATION
  Report Type: 
  Country: None (occurrence: None)
  Receive Date: 20080324
  Receipt Date: 20080324
  Transmission Date: 20080703
  Serious: Yes (Life-Threatening, Hospitalization)
  Sender: FDA-Public Use
  Company Number: None

PATIENT
  Age: 46 Year
  Sex: Male
  Weight: 104.3273 kg

DRUGS (2)
  1. HEPARIN [Suspect]
     Indication: INDWELLING CATHETER MANAGEMENT
     Dosage: 3ML 1 X MONTH IV
     Route: 042
     Dates: start: 20080119, end: 20080119
  2. HEPARIN [Suspect]
     Indication: INDWELLING CATHETER MANAGEMENT
     Dosage: 3ML 1 X MONTH IV
     Route: 042
     Dates: start: 20080219, end: 20080219

REACTIONS (17)
  - ANURIA [None]
  - ASTHENIA [None]
  - BACK PAIN [None]
  - CHEST DISCOMFORT [None]
  - DISORIENTATION [None]
  - DIZZINESS [None]
  - DYSPNOEA [None]
  - HEADACHE [None]
  - HYPERHIDROSIS [None]
  - HYPOTENSION [None]
  - HYPOTHERMIA [None]
  - NAUSEA [None]
  - PHARMACEUTICAL PRODUCT COMPLAINT [None]
  - PYREXIA [None]
  - SERRATIA INFECTION [None]
  - THIRST [None]
  - TREMOR [None]
